FAERS Safety Report 4660895-3 (Version None)
Quarter: 2005Q2

REPORT INFORMATION
  Report Type: 
  Country: None (occurrence: None)
  Receive Date: 20050427
  Receipt Date: 20040629
  Transmission Date: 20051028
  Serious: Yes (Other)
  Sender: FDA-Public Use
  Company Number: US-JNJFOC-20040700038

PATIENT
  Age: 70 Year
  Sex: Female

DRUGS (4)
  1. ULTRAM [Suspect]
     Indication: ARTHRALGIA
     Dosage: ORAL
     Route: 048
     Dates: start: 20040629
  2. BIAXIN [Concomitant]
  3. ADVAIR DISKUS 100/50 [Concomitant]
  4. DUONES  (ALL OTHER THERAPEUTIC PRODUCTS) [Concomitant]

REACTIONS (3)
  - COGNITIVE DISORDER [None]
  - MENTAL IMPAIRMENT [None]
  - SPEECH DISORDER [None]
